FAERS Safety Report 5937679-9 (Version None)
Quarter: 2008Q4

REPORT INFORMATION
  Report Type: 
  Country: None (occurrence: None)
  Receive Date: 20081031
  Receipt Date: 20080528
  Transmission Date: 20090506
  Serious: No
  Sender: FDA-Public Use
  Company Number: US-BAYER-200812459BCC

PATIENT
  Age: 22 Year
  Sex: Female
  Weight: 59 kg

DRUGS (2)
  1. ALEVE (CAPLET) [Suspect]
     Indication: INTENTIONAL OVERDOSE
     Dosage: AS USED: 2200 MG  UNIT DOSE: 220 MG
     Route: 048
     Dates: start: 20080528
  2. UNKNOWN ALLERGY MEDICATION [Concomitant]

REACTIONS (1)
  - NO ADVERSE EVENT [None]
